FAERS Safety Report 5757590-6 (Version None)
Quarter: 2008Q2

REPORT INFORMATION
  Report Type: 
  Country: None (occurrence: None)
  Receive Date: 20080603
  Receipt Date: 20080522
  Transmission Date: 20081010
  Serious: Yes (Disabling, Other)
  Sender: FDA-Public Use
  Company Number: US-PFIZER INC-2007103177

PATIENT
  Sex: Female

DRUGS (11)
  1. DILANTIN [Suspect]
     Indication: EPILEPSY
     Route: 048
  2. LYRICA [Suspect]
     Indication: CONVULSION
     Dates: start: 20070101, end: 20070101
  3. GABAPENTIN [Suspect]
  4. VITAMIN D [Concomitant]
     Dosage: DAILY DOSE:50000I.U.
     Route: 048
     Dates: start: 20070629
  5. PRIMIDONE [Concomitant]
     Indication: CONVULSION
     Route: 048
  6. ALL OTHER THERAPEUTIC PRODUCTS [Concomitant]
  7. VITAMIN B-12 [Concomitant]
     Route: 048
  8. CITRACAL + D [Concomitant]
     Route: 048
  9. DOCUSATE SODIUM [Concomitant]
     Route: 048
  10. VITAMIN E [Concomitant]
     Route: 048
  11. INULIN [Concomitant]
     Dosage: TEXT:1 HEAPING TEASPOON IN 8 OZ WATER-FREQ:2-3 TIMES DAILY
     Route: 048

REACTIONS (13)
  - BODY HEIGHT DECREASED [None]
  - BREAST CANCER METASTATIC [None]
  - COMPUTERISED TOMOGRAM ABNORMAL [None]
  - ERYTHEMA [None]
  - HEAD INJURY [None]
  - HEADACHE [None]
  - IMPAIRED WORK ABILITY [None]
  - INFLUENZA [None]
  - INSOMNIA [None]
  - LYMPHOEDEMA [None]
  - RASH [None]
  - SURGERY [None]
  - WEIGHT DECREASED [None]
